FAERS Safety Report 17515582 (Version 2)
Quarter: 2020Q1

REPORT INFORMATION
  Report Type: Spontaneous
  Country: US (occurrence: US)
  Receive Date: 20200309
  Receipt Date: 20200326
  Transmission Date: 20200409
  Serious: Yes (Hospitalization, Other)
  Sender: FDA-Public Use
  Company Number: US-ALKEM LABORATORIES LIMITED-US-ALKEM-2020-00568

PATIENT
  Age: 44 Year
  Sex: Male
  Weight: 88 kg

DRUGS (4)
  1. GABAPENTIN. [Suspect]
     Active Substance: GABAPENTIN
     Indication: SEIZURE
     Dosage: 800 MILLIGRAM, TID
     Route: 065
  2. CLINDAMYCIN. [Suspect]
     Active Substance: CLINDAMYCIN
     Dosage: 300 MILLIGRAM, OD
     Route: 065
  3. CLINDAMYCIN. [Suspect]
     Active Substance: CLINDAMYCIN
     Indication: INFECTION
     Dosage: 150 MILLIGRAM, TID
     Route: 065
     Dates: start: 20190716
  4. GABAPENTIN. [Suspect]
     Active Substance: GABAPENTIN
     Indication: PAIN
     Dosage: 800 MILLIGRAM, QID
     Route: 065

REACTIONS (11)
  - Generalised tonic-clonic seizure [Recovered/Resolved with Sequelae]
  - Disorientation [Unknown]
  - Diarrhoea [Unknown]
  - Muscle twitching [Unknown]
  - Irritability [Unknown]
  - Headache [Unknown]
  - Drug interaction [Unknown]
  - Product use in unapproved indication [Unknown]
  - Dehydration [Unknown]
  - Muscle spasms [Unknown]
  - Aggression [Unknown]

NARRATIVE: CASE EVENT DATE: 20200125
